FAERS Safety Report 7315394-7 (Version None)
Quarter: 2011Q1

REPORT INFORMATION
  Report Type: 
  Country: None (occurrence: None)
  Receive Date: 20110225
  Receipt Date: 20110217
  Transmission Date: 20110831
  Serious: Yes (Hospitalization)
  Sender: FDA-Public Use
  Company Number: A0863792A

PATIENT
  Age: 50 Year
  Sex: Female
  Weight: 126.8 kg

DRUGS (7)
  1. CORTICOSTEROID [Concomitant]
  2. AVANDIA [Suspect]
     Indication: DIABETES MELLITUS
     Dosage: 4MG TWICE PER DAY
     Route: 048
     Dates: start: 20031101, end: 20060101
  3. CYMBALTA [Concomitant]
  4. NEURONTIN [Concomitant]
  5. TARKA [Concomitant]
  6. LYRICA [Concomitant]
  7. HYDROCHLOROTHIAZIDE [Concomitant]

REACTIONS (7)
  - HYPERTENSION [None]
  - CEREBROVASCULAR ACCIDENT [None]
  - AORTIC VALVE STENOSIS [None]
  - URINARY TRACT INFECTION [None]
  - HYPERLIPIDAEMIA [None]
  - SEPSIS [None]
  - BRAIN STEM STROKE [None]
